FAERS Safety Report 8951000 (Version 1)
Quarter: 2012Q4

REPORT INFORMATION
  Report Type: 
  Country: BR (occurrence: BR)
  Receive Date: 20121207
  Receipt Date: 20121207
  Transmission Date: 20130627
  Serious: Yes (Hospitalization)
  Sender: FDA-Public Use
  Company Number: BR-SANOFI-AVENTIS-2012SA008580

PATIENT
  Age: 30 Year
  Sex: Female
  Weight: 76 kg

DRUGS (3)
  1. CLEXANE [Suspect]
     Indication: DRUG USE FOR UNKNOWN INDICATION
     Route: 058
     Dates: start: 20120124, end: 20120816
  2. OXCARBAZEPINE [Concomitant]
     Indication: CONVULSION PROPHYLAXIS
     Route: 048
     Dates: start: 20120124
  3. WARFARIN [Concomitant]
     Dates: start: 20120816

REACTIONS (2)
  - Placental disorder [Recovered/Resolved]
  - Retained placenta or membranes [Recovered/Resolved]
